FAERS Safety Report 25815437 (Version 1)
Quarter: 2025Q3

REPORT INFORMATION
  Report Type: Spontaneous
  Country: EU (occurrence: EU)
  Receive Date: 20250918
  Receipt Date: 20250918
  Transmission Date: 20251020
  Serious: Yes (Other)
  Sender: MELINTA THERAPEUTICS
  Company Number: None

PATIENT

DRUGS (2)
  1. ORITAVANCIN [Suspect]
     Active Substance: ORITAVANCIN
     Indication: Fracture infection
     Dates: start: 20250822, end: 202508
  2. ORITAVANCIN [Suspect]
     Active Substance: ORITAVANCIN
     Indication: Joint dislocation

REACTIONS (3)
  - Feeling cold [Recovered/Resolved]
  - Chills [Recovered/Resolved]
  - Product use in unapproved indication [Recovered/Resolved]

NARRATIVE: CASE EVENT DATE: 20250822
